FAERS Safety Report 9263662 (Version 1)
Quarter: 2013Q2

REPORT INFORMATION
  Report Type: Spontaneous
  Country: US (occurrence: US)
  Receive Date: 20130430
  Receipt Date: 20130430
  Transmission Date: 20140414
  Serious: No
  Sender: FDA-Public Use
  Company Number: US-COVIDIEN/TYCO HEALTHCARE/MALLINCKRODT-T201202770

PATIENT
  Age: 30 Year
  Sex: Male

DRUGS (4)
  1. METHYLIN EXTENDED-RELEASE [Suspect]
     Indication: DISTURBANCE IN ATTENTION
     Dosage: UNK
     Dates: start: 201106
  2. LORAZEPAM [Concomitant]
     Indication: INSOMNIA
  3. VITAMIN C                          /00008001/ [Concomitant]
  4. MULTIVITAMIN                       /01229101/ [Concomitant]

REACTIONS (3)
  - Confusional state [Not Recovered/Not Resolved]
  - Headache [Recovered/Resolved]
  - Drug effect decreased [Not Recovered/Not Resolved]
